FAERS Safety Report 10121098 (Version 2)
Quarter: 2014Q2

REPORT INFORMATION
  Report Type: Spontaneous
  Country: US (occurrence: US)
  Receive Date: 20140425
  Receipt Date: 20140619
  Transmission Date: 20141212
  Serious: No
  Sender: FDA-Public Use
  Company Number: US-009507513-1404USA011910

PATIENT
  Age: 79 Year
  Sex: Male
  Weight: 72.56 kg

DRUGS (6)
  1. CLARITIN [Suspect]
     Indication: PULMONARY CONGESTION
     Dosage: 10 MG, QD
     Route: 048
  2. CLARITIN [Suspect]
     Indication: LACRIMATION INCREASED
  3. CLARITIN [Suspect]
     Indication: CHRONIC OBSTRUCTIVE PULMONARY DISEASE
  4. CLARITIN [Suspect]
     Indication: RHINORRHOEA
  5. CLARITIN [Suspect]
     Indication: PRURITUS
  6. CLARITIN [Suspect]
     Indication: HYPERSENSITIVITY

REACTIONS (2)
  - Dry mouth [Unknown]
  - Drug ineffective [Unknown]
